FAERS Safety Report 7983602-5 (Version None)
Quarter: 2011Q4

REPORT INFORMATION
  Report Type: 
  Country: None (occurrence: None)
  Receive Date: 20111215
  Receipt Date: 20111212
  Transmission Date: 20120403
  Serious: Yes (Death)
  Sender: FDA-Public Use
  Company Number: PHEH2011US011488

PATIENT
  Sex: Female

DRUGS (2)
  1. RECLAST [Suspect]
     Dosage: UNK
     Route: 042
     Dates: start: 20100930
  2. RECLAST [Suspect]
     Dosage: UNK
     Route: 042
     Dates: start: 20090929

REACTIONS (1)
  - CEREBROVASCULAR ACCIDENT [None]
